FAERS Safety Report 7508546-4 (Version None)
Quarter: 2011Q2

REPORT INFORMATION
  Report Type: 
  Country: None (occurrence: None)
  Receive Date: 20110527
  Receipt Date: 20110523
  Transmission Date: 20111010
  Serious: Yes (Hospitalization)
  Sender: FDA-Public Use
  Company Number: US-B.I. PHARMACEUTICALS,INC./RIDGEFIELD-2011-BP-13761BP

PATIENT
  Sex: Female

DRUGS (5)
  1. EXFORGE [Concomitant]
     Indication: HYPERTENSION
     Dosage: 6/180MG DAILY
     Route: 048
  2. ANTARA (MICRONIZED) [Concomitant]
     Indication: BLOOD CHOLESTEROL INCREASED
     Dosage: 130 MG
     Route: 048
  3. COREG [Concomitant]
     Indication: CARDIAC DISORDER
     Dosage: 25.2 MG
     Route: 048
  4. PRADAXA [Suspect]
     Indication: ATRIAL FIBRILLATION
     Dosage: 300 MG
     Route: 048
     Dates: start: 20100101
  5. DIGOXIN [Concomitant]
     Indication: ARRHYTHMIA
     Dosage: 0.125 MG
     Route: 048

REACTIONS (2)
  - OSTEOPOROTIC FRACTURE [None]
  - GASTROINTESTINAL HAEMORRHAGE [None]
